FAERS Safety Report 13672494 (Version 3)
Quarter: 2017Q4

REPORT INFORMATION
  Report Type: Report from Study
  Country: None (occurrence: NL)
  Receive Date: 20170620
  Receipt Date: 20171220
  Transmission Date: 20180320
  Serious: Yes (Other)
  Sender: FDA-Public Use
  Company Number: NL-ABBVIE-17P-114-2012619-00

PATIENT
  Age: 75 Year
  Sex: Male
  Weight: 80 kg

DRUGS (17)
  1. LUCRIN DEPOT [Suspect]
     Active Substance: LEUPROLIDE ACETATE
     Indication: PROSTATE CANCER
     Route: 050
     Dates: start: 200906
  2. LUCRIN DEPOT [Suspect]
     Active Substance: LEUPROLIDE ACETATE
     Route: 050
  3. PANTOPRAZOLE [Concomitant]
     Active Substance: PANTOPRAZOLE
     Indication: PRODUCT USED FOR UNKNOWN INDICATION
     Route: 048
  4. ROPINIROLE. [Concomitant]
     Active Substance: ROPINIROLE
     Dosage: ACCORDING SCHEDULE
     Route: 048
  5. MACROGOL + ELECTROLYTES [Concomitant]
     Indication: PRODUCT USED FOR UNKNOWN INDICATION
  6. CARBASALATE CALCIUM [Concomitant]
     Active Substance: CARBASPIRIN
     Indication: PRODUCT USED FOR UNKNOWN INDICATION
     Route: 048
  7. MACROGOL + ELECTROLYTES [Concomitant]
     Indication: PRODUCT USED FOR UNKNOWN INDICATION
     Dosage: 1-2 TIMES DAILY WHEN NEEDED
     Route: 048
  8. OXYCODONE [Concomitant]
     Active Substance: OXYCODONE
     Route: 048
  9. PARACETAMOL [Concomitant]
     Active Substance: ACETAMINOPHEN
     Indication: PRODUCT USED FOR UNKNOWN INDICATION
     Route: 048
  10. OXYCODONE [Concomitant]
     Active Substance: OXYCODONE
     Indication: PRODUCT USED FOR UNKNOWN INDICATION
     Route: 048
  11. PERINDOPRIL ERBUMINE. [Concomitant]
     Active Substance: PERINDOPRIL ERBUMINE
     Indication: PRODUCT USED FOR UNKNOWN INDICATION
     Route: 048
  12. ROPINIROLE. [Concomitant]
     Active Substance: ROPINIROLE
     Indication: RESTLESS LEGS SYNDROME
     Dosage: ACCORDING SCHEDULE
     Route: 048
  13. LUCRIN DEPOT [Suspect]
     Active Substance: LEUPROLIDE ACETATE
     Route: 050
     Dates: start: 20150114
  14. DIPYRIDAMOLE. [Concomitant]
     Active Substance: DIPYRIDAMOLE
     Indication: PRODUCT USED FOR UNKNOWN INDICATION
  15. ACETYLSALICYLIC ACID [Concomitant]
     Active Substance: ASPIRIN
     Indication: PRODUCT USED FOR UNKNOWN INDICATION
     Route: 048
  16. TAMSULOSIN [Concomitant]
     Active Substance: TAMSULOSIN
     Indication: PRODUCT USED FOR UNKNOWN INDICATION
     Route: 048
  17. MORPHINE [Concomitant]
     Active Substance: MORPHINE
     Indication: PRODUCT USED FOR UNKNOWN INDICATION
     Dosage: CONFORM PRESCRIPTION

REACTIONS (9)
  - Hernia [Recovered/Resolved with Sequelae]
  - Fluid retention [Recovering/Resolving]
  - Spinal operation [Unknown]
  - Inguinal hernia [Recovered/Resolved]
  - Oedema [Not Recovered/Not Resolved]
  - Restless legs syndrome [Unknown]
  - Musculoskeletal disorder [Unknown]
  - Gait disturbance [Not Recovered/Not Resolved]
  - Weight decreased [Not Recovered/Not Resolved]

NARRATIVE: CASE EVENT DATE: 201609
